FAERS Safety Report 6555600-X (Version None)
Quarter: 2010Q1

REPORT INFORMATION
  Report Type: 
  Country: None (occurrence: None)
  Receive Date: 20100128
  Receipt Date: 20100120
  Transmission Date: 20100710
  Serious: No
  Sender: FDA-Public Use
  Company Number: DE-ASTRAZENECA-2009SE26144

PATIENT
  Age: 425 Month
  Sex: Female
  Weight: 57 kg

DRUGS (2)
  1. SEROQUEL XR [Suspect]
     Indication: SCHIZOAFFECTIVE DISORDER
     Route: 048
     Dates: start: 20090910, end: 20091109
  2. SEROQUEL XR [Suspect]
     Route: 048
     Dates: start: 20091110

REACTIONS (1)
  - LYMPHOPENIA [None]
